FAERS Safety Report 12127858 (Version 1)
Quarter: 2016Q1

REPORT INFORMATION
  Report Type: Spontaneous
  Country: CN (occurrence: CN)
  Receive Date: 20160229
  Receipt Date: 20160229
  Transmission Date: 20160526
  Serious: Yes (Hospitalization)
  Sender: FDA-Public Use
  Company Number: PHHY2016CN025109

PATIENT
  Age: 64 Year
  Sex: Female

DRUGS (2)
  1. ENALAPRIL [Concomitant]
     Active Substance: ENALAPRIL
     Indication: BLOOD PRESSURE INCREASED
     Dosage: 10 MG, BID
     Route: 048
  2. DICLOFENAC [Suspect]
     Active Substance: DICLOFENAC
     Indication: ARTHRALGIA
     Dosage: 25 MG, TID
     Route: 048

REACTIONS (2)
  - Melaena [Unknown]
  - Hypertension [Recovered/Resolved]
